FAERS Safety Report 7571329-3 (Version None)
Quarter: 2011Q2

REPORT INFORMATION
  Report Type: 
  Country: None (occurrence: None)
  Receive Date: 20110624
  Receipt Date: 20110427
  Transmission Date: 20111010
  Serious: Yes (Other)
  Sender: FDA-Public Use
  Company Number: B0717111A

PATIENT
  Age: 29 Year
  Sex: Female

DRUGS (2)
  1. UNKNOWN DRUG [Suspect]
     Indication: MAJOR DEPRESSION
     Route: 048
     Dates: start: 20101201, end: 20110426
  2. BUPROPION HYDROCHLORIDE [Suspect]
     Indication: MAJOR DEPRESSION
     Dosage: 300MG PER DAY
     Route: 048
     Dates: start: 20101201

REACTIONS (2)
  - DRUG EXPOSURE DURING PREGNANCY [None]
  - ABORTION SPONTANEOUS [None]
